FAERS Safety Report 15258703 (Version 1)
Quarter: 2018Q3

REPORT INFORMATION
  Report Type: Spontaneous
  Country: DE (occurrence: DE)
  Receive Date: 20180809
  Receipt Date: 20180809
  Transmission Date: 20181010
  Serious: Yes (Disabling, Other)
  Sender: FDA-Public Use
  Company Number: DE-TEVA-2018-DE-936717

PATIENT
  Sex: Male

DRUGS (3)
  1. PREDNI?OPHTAL GEL [Suspect]
     Active Substance: PREDNISOLONE ACETATE
     Indication: HERPES OPHTHALMIC
     Route: 065
  2. CELESTAMINE [Suspect]
     Active Substance: BETAMETHASONE\DEXCHLORPHENIRAMINE MALEATE
     Indication: HERPES OPHTHALMIC
     Dosage: DEPOT
     Route: 065
  3. ACICLOVIR [Suspect]
     Active Substance: ACYCLOVIR
     Indication: HERPES OPHTHALMIC
     Route: 065

REACTIONS (3)
  - Corneal opacity [Not Recovered/Not Resolved]
  - Visual acuity reduced [Not Recovered/Not Resolved]
  - Loss of personal independence in daily activities [Not Recovered/Not Resolved]
